FAERS Safety Report 16198322 (Version 3)
Quarter: 2019Q2

REPORT INFORMATION
  Report Type: Spontaneous
  Country: FR (occurrence: FR)
  Receive Date: 20190415
  Receipt Date: 20190509
  Transmission Date: 20190711
  Serious: Yes (Death)
  Sender: FDA-Public Use
  Company Number: FR-009507513-1904FRA004245

PATIENT
  Age: 35 Year
  Sex: Male
  Weight: 75 kg

DRUGS (10)
  1. AMIKACIN. [Suspect]
     Active Substance: AMIKACIN
     Indication: INFECTION
     Dosage: 1 DOSAGE FORM, ONCE
     Route: 048
     Dates: start: 20190318, end: 20190318
  2. PIPERACILLIN AND TAZOBACTAM [Suspect]
     Active Substance: PIPERACILLIN SODIUM\TAZOBACTAM SODIUM
     Indication: INFECTION
     Dosage: 16 GRAM, QD
     Route: 042
     Dates: start: 20190318, end: 20190323
  3. NOXAFIL [Suspect]
     Active Substance: POSACONAZOLE
     Indication: OPPORTUNISTIC INFECTION PROPHYLAXIS
     Dosage: 3 DOSAGE FORM
     Route: 048
     Dates: start: 20190318, end: 20190323
  4. ZOVIRAX [Suspect]
     Active Substance: ACYCLOVIR
     Dosage: 1000 MILLIGRAM, QD
     Route: 048
     Dates: start: 20190312, end: 20190323
  5. ZOPHREN (ONDANSETRON HYDROCHLORIDE) [Suspect]
     Active Substance: ONDANSETRON HYDROCHLORIDE
     Indication: NAUSEA
     Dosage: 8 MILLIGRAM, CYCLICAL
     Route: 042
     Dates: start: 20190312, end: 20190323
  6. MITOXANTRONE HYDROCHLORIDE. [Suspect]
     Active Substance: MITOXANTRONE HYDROCHLORIDE
     Indication: ACUTE MYELOID LEUKAEMIA
     Dosage: 22.3 MILLIGRAM, QD
     Route: 042
     Dates: start: 20190312, end: 20190314
  7. PRIMPERAN [Suspect]
     Active Substance: METOCLOPRAMIDE HYDROCHLORIDE
     Indication: NAUSEA
     Dosage: 30 MILLIGRAM, QD
     Route: 048
     Dates: start: 20190318, end: 20190323
  8. MYLOTARG [Suspect]
     Active Substance: GEMTUZUMAB OZOGAMICIN
     Indication: ACUTE MYELOID LEUKAEMIA
     Dosage: 16.7 MILLIGRAM, ONCE
     Route: 042
     Dates: start: 20190315, end: 20190315
  9. CYTARABINE. [Suspect]
     Active Substance: CYTARABINE
     Indication: ACUTE MYELOID LEUKAEMIA
     Dosage: 3720 MILLIGRAM, QD
     Route: 042
     Dates: start: 20190312, end: 20190316
  10. PANTOPRAZOLE [Concomitant]
     Active Substance: PANTOPRAZOLE
     Indication: PRODUCT USED FOR UNKNOWN INDICATION
     Dosage: 120 MILLIGRAM, QD
     Route: 048
     Dates: start: 20190312, end: 20190323

REACTIONS (2)
  - Hepatitis fulminant [Fatal]
  - Hepatic failure [Fatal]

NARRATIVE: CASE EVENT DATE: 20190323
